FAERS Safety Report 8016109-X (Version None)
Quarter: 2011Q4

REPORT INFORMATION
  Report Type: 
  Country: None (occurrence: None)
  Receive Date: 20111230
  Receipt Date: 20111220
  Transmission Date: 20120403
  Serious: Yes (Other)
  Sender: FDA-Public Use
  Company Number: JP-BAYER-2011-120803

PATIENT
  Age: 67 Year
  Sex: Male

DRUGS (3)
  1. ASPIRIN [Suspect]
     Dosage: UNK
     Route: 048
     Dates: start: 20040101, end: 20110601
  2. HEPARIN [Concomitant]
     Dosage: UNK
     Dates: start: 20110601
  3. TICLOPIDINE HYDROCHLORIDE [Concomitant]
     Dosage: UNK
     Route: 048
     Dates: start: 20040101, end: 20050101

REACTIONS (2)
  - FAECES DISCOLOURED [None]
  - THROMBOSIS IN DEVICE [None]
